FAERS Safety Report 22197062 (Version 3)
Quarter: 2023Q2

REPORT INFORMATION
  Report Type: Spontaneous
  Country: US (occurrence: US)
  Receive Date: 20230411
  Receipt Date: 20230602
  Transmission Date: 20230722
  Serious: Yes (Other)
  Sender: FDA-Public Use
  Company Number: US-PFIZER INC-PV202300064409

PATIENT
  Age: 67 Year
  Sex: Female

DRUGS (1)
  1. XALKORI [Suspect]
     Active Substance: CRIZOTINIB
     Dosage: 250 MG

REACTIONS (7)
  - Mental impairment [Unknown]
  - Second primary malignancy [Unknown]
  - Brain neoplasm malignant [Unknown]
  - Arthropathy [Unknown]
  - Memory impairment [Unknown]
  - Thinking abnormal [Unknown]
  - Constipation [Unknown]
